FAERS Safety Report 8496542-2 (Version None)
Quarter: 2012Q3

REPORT INFORMATION
  Report Type: 
  Country: None (occurrence: None)
  Receive Date: 20120709
  Receipt Date: 20120703
  Transmission Date: 20120928
  Serious: Yes (Hospitalization)
  Sender: FDA-Public Use
  Company Number: US-ELI_LILLY_AND_COMPANY-US201205009733

PATIENT
  Sex: Male

DRUGS (11)
  1. HYDROCORTISONE [Concomitant]
  2. CARTIA XT [Concomitant]
  3. HUMATROPE [Suspect]
     Indication: HYPOTHALAMO-PITUITARY DISORDER
     Dosage: 1.1 MG, EVERY OTHER DAY
  4. FLOMAX [Concomitant]
  5. RAMIPRIL [Concomitant]
  6. CYMBALTA [Concomitant]
  7. SYNTHROID [Concomitant]
  8. ANDROGEL [Concomitant]
  9. HUMAN GROWTH HORMONE [Concomitant]
  10. PRAVASTATIN [Concomitant]
  11. FLEMEX [Concomitant]

REACTIONS (2)
  - INTERVERTEBRAL DISC PROTRUSION [None]
  - INCORRECT DOSE ADMINISTERED [None]
